FAERS Safety Report 18615415 (Version 1)
Quarter: 2020Q4

REPORT INFORMATION
  Report Type: Spontaneous
  Country: HU (occurrence: HU)
  Receive Date: 20201214
  Receipt Date: 20201214
  Transmission Date: 20210114
  Serious: Yes (Hospitalization, Other)
  Sender: FDA-Public Use
  Company Number: NVSC2020HU318389

PATIENT
  Age: 60 Year
  Sex: Female

DRUGS (4)
  1. TRAMETINIB [Suspect]
     Active Substance: TRAMETINIB
     Indication: METASTASES TO LUNG
     Dosage: UNK
     Route: 065
     Dates: start: 2020
  2. DABRAFENIB [Suspect]
     Active Substance: DABRAFENIB
     Indication: METASTASES TO LUNG
     Dosage: UNK
     Route: 065
     Dates: start: 201703, end: 201910
  3. DABRAFENIB [Suspect]
     Active Substance: DABRAFENIB
     Indication: METASTASES TO LUNG
     Dosage: UNK
     Route: 065
     Dates: start: 2020
  4. TRAMETINIB [Suspect]
     Active Substance: TRAMETINIB
     Indication: METASTASES TO LUNG
     Dosage: UNK
     Route: 065
     Dates: start: 201703, end: 201910

REACTIONS (16)
  - Vasculitis [Recovered/Resolved]
  - Malignant neoplasm progression [Not Recovered/Not Resolved]
  - Blood urea [Unknown]
  - Immune-mediated hepatitis [Recovered/Resolved]
  - Diarrhoea [Unknown]
  - Arthralgia [Recovered/Resolved]
  - Nausea [Unknown]
  - Hyperthyroidism [Unknown]
  - Metastases to lung [Unknown]
  - Blood creatinine [Unknown]
  - Chills [Recovered/Resolved]
  - Blood lactate dehydrogenase increased [Unknown]
  - Transaminases [Unknown]
  - Skin exfoliation [Recovered/Resolved]
  - Central nervous system lesion [Not Recovered/Not Resolved]
  - Blood creatine phosphokinase increased [Unknown]

NARRATIVE: CASE EVENT DATE: 2018
